FAERS Safety Report 10584844 (Version 2)
Quarter: 2017Q1

REPORT INFORMATION
  Report Type: Report from Study
  Country: US (occurrence: US)
  Receive Date: 20141114
  Receipt Date: 20170223
  Transmission Date: 20170428
  Serious: Yes (Death, Life-Threatening, Other)
  Sender: FDA-Public Use
  Company Number: US-BRISTOL-MYERS SQUIBB COMPANY-21556527

PATIENT
  Age: 44 Year
  Sex: Female

DRUGS (1)
  1. BELATACEPT [Suspect]
     Active Substance: BELATACEPT
     Indication: PRODUCT USED FOR UNKNOWN INDICATION
     Dosage: 750 MG, UNK
     Route: 042
     Dates: start: 20121112

REACTIONS (8)
  - Multiple organ dysfunction syndrome [Fatal]
  - Clostridium test positive [Unknown]
  - White blood cell count decreased [Unknown]
  - Haemoglobin decreased [Unknown]
  - Histiocytosis haematophagic [Fatal]
  - Platelet count decreased [Unknown]
  - Acute kidney injury [Fatal]
  - Epstein-Barr viraemia [Unknown]

NARRATIVE: CASE EVENT DATE: 20130113
